FAERS Safety Report 8784251 (Version 1)
Quarter: 2012Q4

REPORT INFORMATION
  Report Type: Spontaneous
  Country: US (occurrence: None)
  Receive Date: 20120905
  Receipt Date: 20120905
  Transmission Date: 20130627
  Serious: Yes (Hospitalization)
  Sender: FDA-Public Use
  Company Number: None

PATIENT
  Age: 46 Year
  Sex: Male
  Weight: 86.18 kg

DRUGS (2)
  1. LORATADINE [Suspect]
     Indication: ALLERGY
     Route: 048
     Dates: start: 20120831, end: 20120901
  2. LORATADINE [Suspect]
     Indication: SORE THROAT
     Route: 048
     Dates: start: 20120831, end: 20120901

REACTIONS (8)
  - Rash [None]
  - Hyperhidrosis [None]
  - Feeling hot [None]
  - Pruritus [None]
  - Burning sensation [None]
  - Heart rate increased [None]
  - Extrasystoles [None]
  - Blood pressure increased [None]
